FAERS Safety Report 8196295-1 (Version None)
Quarter: 2012Q1

REPORT INFORMATION
  Report Type: 
  Country: None (occurrence: None)
  Receive Date: 20120309
  Receipt Date: 20120305
  Transmission Date: 20120608
  Serious: Yes (Other)
  Sender: FDA-Public Use
  Company Number: US-PFIZER INC-2012051637

PATIENT
  Sex: Male
  Weight: 83 kg

DRUGS (1)
  1. CHANTIX [Suspect]
     Indication: SMOKING CESSATION THERAPY
     Dosage: 0.5 MG, 1X/DAY
     Route: 048
     Dates: start: 20120217, end: 20120225

REACTIONS (6)
  - CHEST PAIN [None]
  - CHEST DISCOMFORT [None]
  - ANXIETY [None]
  - MENTAL DISORDER [None]
  - IRRITABILITY [None]
  - AGITATION [None]
